FAERS Safety Report 9771367 (Version 1)
Quarter: 2013Q4

REPORT INFORMATION
  Report Type: Spontaneous
  Country: AU (occurrence: AU)
  Receive Date: 20131218
  Receipt Date: 20131218
  Transmission Date: 20140711
  Serious: Yes (Hospitalization, Other)
  Sender: FDA-Public Use
  Company Number: AU-009507513-1312AUS007237

PATIENT
  Age: 49 Year
  Sex: Male

DRUGS (3)
  1. RIBAVIRIN [Suspect]
     Route: 048
  2. PEGASYS [Suspect]
  3. BOCEPREVIR [Concomitant]
     Route: 048

REACTIONS (1)
  - Staphylococcal sepsis [Unknown]
